FAERS Safety Report 5864540-0 (Version None)
Quarter: 2008Q3

REPORT INFORMATION
  Report Type: 
  Country: None (occurrence: None)
  Receive Date: 20080829
  Receipt Date: 20080821
  Transmission Date: 20090109
  Serious: Yes (Hospitalization)
  Sender: FDA-Public Use
  Company Number: HU-AVENTIS-200818016GDDC

PATIENT
  Age: 63 Year
  Sex: Female
  Weight: 63 kg

DRUGS (12)
  1. APIDRA [Suspect]
     Route: 058
  2. LANTUS [Suspect]
     Route: 058
     Dates: start: 20070123
  3. FUROSEMID [Concomitant]
  4. HUMA-PRONOL [Concomitant]
  5. DIGOXIN [Concomitant]
  6. SIMVOR [Concomitant]
  7. MILURIT [Concomitant]
  8. DOXIUM [Concomitant]
  9. VEROSPIRON [Concomitant]
  10. NEO-FER [Concomitant]
  11. FOLGAMMA                           /00349401/ [Concomitant]
  12. RENITEC                            /00574901/ [Concomitant]

REACTIONS (3)
  - HYPOGLYCAEMIA [None]
  - HYPOTENSION [None]
  - SYNCOPE [None]
